FAERS Safety Report 22291110 (Version 9)
Quarter: 2025Q3

REPORT INFORMATION
  Report Type: Report from Study
  Country: US (occurrence: US)
  Receive Date: 20230506
  Receipt Date: 20250901
  Transmission Date: 20251021
  Serious: Yes (Life-Threatening, Other)
  Sender: NOVARTIS
  Company Number: US-002147023-NVSC2023US100377

PATIENT
  Sex: Female

DRUGS (2)
  1. GILENYA [Suspect]
     Active Substance: FINGOLIMOD HYDROCHLORIDE
     Indication: Product used for unknown indication
     Route: 065
  2. BOTOX [Concomitant]
     Active Substance: ONABOTULINUMTOXINA
     Indication: Product used for unknown indication
     Route: 065

REACTIONS (7)
  - Hepatic failure [Unknown]
  - Ill-defined disorder [Unknown]
  - Eye injury [Unknown]
  - Pain in extremity [Unknown]
  - Insomnia [Unknown]
  - Central nervous system lesion [Unknown]
  - Hypertension [Unknown]
